FAERS Safety Report 14718026 (Version 5)
Quarter: 2019Q1

REPORT INFORMATION
  Report Type: Report from Study
  Country: US (occurrence: US)
  Receive Date: 20180404
  Receipt Date: 20190307
  Transmission Date: 20190417
  Serious: No
  Sender: FDA-Public Use
  Company Number: US-SA-2018SA062441

PATIENT
  Age: 54 Year
  Sex: Female
  Weight: 50 kg

DRUGS (5)
  1. ONDANSETRON [Concomitant]
     Active Substance: ONDANSETRON
  2. DUPILUMAB [Suspect]
     Active Substance: DUPILUMAB
     Indication: ECZEMA
  3. FLUCONAZOLE. [Concomitant]
     Active Substance: FLUCONAZOLE
  4. DUPILUMAB [Suspect]
     Active Substance: DUPILUMAB
     Indication: DERMATITIS ATOPIC
     Dosage: 300 MG, QOW
     Route: 058
     Dates: start: 20180213
  5. KETOCONAZOLE. [Concomitant]
     Active Substance: KETOCONAZOLE

REACTIONS (8)
  - Skin discolouration [Unknown]
  - Underdose [Unknown]
  - Injection site pain [Unknown]
  - Oral herpes [Unknown]
  - Injection site swelling [Unknown]
  - Pruritus [Unknown]
  - Device issue [Unknown]
  - Eczema [Unknown]

NARRATIVE: CASE EVENT DATE: 20180213
